FAERS Safety Report 10181463 (Version 1)
Quarter: 2014Q2

REPORT INFORMATION
  Report Type: Report from Study
  Country: US (occurrence: ZA)
  Receive Date: 20140519
  Receipt Date: 20140519
  Transmission Date: 20141212
  Serious: Yes (Life-Threatening)
  Sender: FDA-Public Use
  Company Number: ZA-FRI-1000067226

PATIENT
  Age: 57 Year
  Sex: Female
  Weight: 77 kg

DRUGS (3)
  1. ASENAPINE [Suspect]
     Indication: BIPOLAR I DISORDER
     Dosage: 10 MG
     Route: 048
     Dates: start: 201303
  2. PREMELLE [Suspect]
     Indication: MENOPAUSE
     Route: 048
     Dates: start: 2001
  3. EPILEM [Concomitant]
     Dates: start: 2001

REACTIONS (1)
  - Deep vein thrombosis [Unknown]
